FAERS Safety Report 9817773 (Version 3)
Quarter: 2014Q1

REPORT INFORMATION
  Report Type: Report from Study
  Country: JP (occurrence: JP)
  Receive Date: 20140115
  Receipt Date: 20140318
  Transmission Date: 20141002
  Serious: Yes (Death)
  Sender: FDA-Public Use
  Company Number: JP-ROCHE-1331303

PATIENT
  Age: 63 Year
  Sex: Male

DRUGS (9)
  1. METHOXY POLYETHYLENE GLYCOL-EPOETIN BETA [Suspect]
     Indication: NEPHROGENIC ANAEMIA
     Route: 058
     Dates: start: 20130117, end: 20130220
  2. METHOXY POLYETHYLENE GLYCOL-EPOETIN BETA [Suspect]
     Indication: NEPHROGENIC ANAEMIA
     Route: 058
     Dates: start: 20130221, end: 20130320
  3. METHOXY POLYETHYLENE GLYCOL-EPOETIN BETA [Suspect]
     Indication: NEPHROGENIC ANAEMIA
     Route: 058
     Dates: start: 20130321, end: 20130425
  4. KREMEZIN [Concomitant]
     Indication: DIABETIC NEPHROPATHY
     Route: 048
  5. DIOVAN [Concomitant]
     Route: 048
  6. LASIX [Concomitant]
     Indication: DIABETIC NEPHROPATHY
     Route: 048
  7. ARGAMATE [Concomitant]
     Indication: DIABETIC NEPHROPATHY
     Route: 048
  8. FEROTYM [Concomitant]
     Indication: DIABETIC NEPHROPATHY
     Route: 048
  9. KALIMATE [Concomitant]
     Indication: DIABETIC NEPHROPATHY
     Route: 048

REACTIONS (1)
  - Death [Fatal]
